FAERS Safety Report 4555602-9 (Version None)
Quarter: 2005Q1

REPORT INFORMATION
  Report Type: 
  Country: None (occurrence: None)
  Receive Date: 20050118
  Receipt Date: 20050104
  Transmission Date: 20050727
  Serious: Yes (Hospitalization)
  Sender: FDA-Public Use
  Company Number: GXKR2005PT00472

PATIENT
  Age: 42 Year
  Sex: Female

DRUGS (2)
  1. RIFAMPICIN (NGX)(RIFAMPICIN) UNKNOWN [Suspect]
     Indication: TUBERCULIN TEST POSITIVE
     Dosage: 900 MG/DAY
  2. ISONIAZID [Suspect]
     Indication: TUBERCULIN TEST POSITIVE
     Dosage: 450 MG/DAY

REACTIONS (7)
  - ARTHRALGIA [None]
  - GENERAL PHYSICAL HEALTH DETERIORATION [None]
  - LUPUS-LIKE SYNDROME [None]
  - PARAESTHESIA [None]
  - PERIPHERAL COLDNESS [None]
  - PERIPHERAL ISCHAEMIA [None]
  - VASCULITIS [None]
